FAERS Safety Report 8555423-6 (Version None)
Quarter: 2012Q3

REPORT INFORMATION
  Report Type: 
  Country: None (occurrence: None)
  Receive Date: 20120731
  Receipt Date: 20110825
  Transmission Date: 20120928
  Serious: Yes (Other)
  Sender: FDA-Public Use
  Company Number: US-ASTRAZENECA-2011SE12471

PATIENT
  Sex: Female

DRUGS (15)
  1. SERZONE [Concomitant]
     Route: 048
     Dates: start: 20010430
  2. BUSPAR [Concomitant]
     Route: 048
     Dates: start: 20010430
  3. LEXAPRO [Concomitant]
     Dates: start: 20080228
  4. FUROSEMIDE [Concomitant]
     Route: 048
     Dates: start: 20010430
  5. REMERON [Concomitant]
     Route: 048
     Dates: start: 20010430
  6. BENZTROPINE MESYLATE [Concomitant]
     Dosage: 0.5 MG TAKE ONE TABLET BY MOUTH TWICE A DAY AND 1 TABLET DAILY AS NEEDED
     Route: 048
     Dates: start: 20010430
  7. PRAVASTATIN SODIUM [Concomitant]
     Dates: start: 20080125
  8. EFFEXOR XR [Concomitant]
     Route: 048
     Dates: start: 20010430
  9. CLONAZEPAM [Concomitant]
     Dates: start: 20080125
  10. AZITHROMYCIN [Concomitant]
     Dates: start: 20080214
  11. SEROQUEL [Suspect]
     Dosage: 25 MG TO 400 MG TAKE 2 TABLETS IN THE MORNING AND NIGHT AND ONE AT NOON
     Route: 048
     Dates: start: 20010430
  12. RISPERDAL [Concomitant]
     Route: 048
     Dates: start: 20010430
  13. EVISTA [Concomitant]
     Dates: start: 20080122
  14. LISINOPRIL [Concomitant]
     Dates: start: 20080129
  15. HYDROCODONE ST/APAP [Concomitant]
     Dosage: 5/500 MG TAB
     Dates: start: 20080125

REACTIONS (3)
  - PANCREATITIS [None]
  - TYPE 2 DIABETES MELLITUS [None]
  - DIABETIC COMA [None]
